FAERS Safety Report 5945654-3 (Version None)
Quarter: 2008Q4

REPORT INFORMATION
  Report Type: 
  Country: None (occurrence: None)
  Receive Date: 20081107
  Receipt Date: 20081026
  Transmission Date: 20090506
  Serious: Yes (Other)
  Sender: FDA-Public Use
  Company Number: US-PFIZER INC-2008092328

PATIENT
  Age: 50 Year
  Sex: Female
  Weight: 54.4 kg

DRUGS (4)
  1. CHANTIX [Suspect]
     Indication: SMOKING CESSATION THERAPY
     Dates: start: 20080901, end: 20081001
  2. VITAMINS [Concomitant]
  3. ETODOLAC [Concomitant]
  4. FLUOXETINE [Concomitant]

REACTIONS (3)
  - AFFECT LABILITY [None]
  - DEPRESSED MOOD [None]
  - MOOD SWINGS [None]
